FAERS Safety Report 10075678 (Version 1)
Quarter: 2014Q2

REPORT INFORMATION
  Report Type: Spontaneous
  Country: US (occurrence: US)
  Receive Date: 20140414
  Receipt Date: 20140414
  Transmission Date: 20141212
  Serious: No
  Sender: FDA-Public Use
  Company Number: US-009507513-1404USA006967

PATIENT
  Age: 65 Year
  Sex: 0
  Weight: 81.63 kg

DRUGS (1)
  1. LISINOPRIL [Suspect]

REACTIONS (1)
  - Drug hypersensitivity [Unknown]
